FAERS Safety Report 13739020 (Version 1)
Quarter: 2017Q3

REPORT INFORMATION
  Report Type: Report from Study
  Country: US (occurrence: US)
  Receive Date: 20170710
  Receipt Date: 20170710
  Transmission Date: 20171127
  Serious: Yes (Hospitalization, Other)
  Sender: FDA-Public Use
  Company Number: US-SAOL THERAPEUTICS-0701353095

PATIENT
  Sex: Male

DRUGS (6)
  1. MORPHINE [Suspect]
     Active Substance: MORPHINE
     Dosage: 23.996 MG, \DAY
     Route: 037
     Dates: start: 20160429
  2. COMPOUNDED BACLOFEN [Suspect]
     Active Substance: BACLOFEN
     Dosage: 54.847 ?G, \DAY
     Route: 037
     Dates: start: 20160429
  3. MORPHINE [Suspect]
     Active Substance: MORPHINE
     Dosage: 23.937 MG, \DAY
     Route: 037
     Dates: start: 20151223
  4. CLONIDINE. [Suspect]
     Active Substance: CLONIDINE
     Dosage: 239.96 ?G, \DAY
     Route: 037
     Dates: start: 20160429
  5. CLONIDINE. [Suspect]
     Active Substance: CLONIDINE
     Dosage: 171.24 ?G, \DAY
     Route: 037
     Dates: start: 20151223
  6. COMPOUNDED BACLOFEN [Suspect]
     Active Substance: BACLOFEN
     Dosage: 54.796 ?G, \DAY
     Route: 037
     Dates: start: 20151223

REACTIONS (1)
  - Medical device site infection [Recovered/Resolved]
